FAERS Safety Report 6397450-3 (Version None)
Quarter: 2009Q4

REPORT INFORMATION
  Report Type: 
  Country: None (occurrence: None)
  Receive Date: 20091012
  Receipt Date: 20091006
  Transmission Date: 20100525
  Serious: Yes (Other)
  Sender: FDA-Public Use
  Company Number: PHHY2009SE43118

PATIENT
  Age: 43 Year
  Sex: Male

DRUGS (1)
  1. METOPROLOL [Suspect]

REACTIONS (1)
  - HEARING IMPAIRED [None]
